FAERS Safety Report 6462700-1 (Version None)
Quarter: 2009Q4

REPORT INFORMATION
  Report Type: 
  Country: None (occurrence: None)
  Receive Date: 20091130
  Receipt Date: 20091124
  Transmission Date: 20100525
  Serious: Yes (Other)
  Sender: FDA-Public Use
  Company Number: ES-SANOFI-AVENTIS-200916640EU

PATIENT
  Age: 85 Year
  Sex: Male
  Weight: 70 kg

DRUGS (2)
  1. FUROSEMIDE [Suspect]
     Route: 040
     Dates: start: 20051022, end: 20051024
  2. DIGOXIN [Suspect]
     Route: 040
     Dates: start: 20051022, end: 20051024

REACTIONS (1)
  - PHLEBITIS [None]
